FAERS Safety Report 9805978 (Version 1)
Quarter: 2014Q1

REPORT INFORMATION
  Report Type: Report from Study
  Country: US (occurrence: US)
  Receive Date: 20140109
  Receipt Date: 20140109
  Transmission Date: 20141002
  Serious: Yes (Other)
  Sender: FDA-Public Use
  Company Number: PHEH2014US000729

PATIENT
  Sex: Male
  Weight: 75.74 kg

DRUGS (14)
  1. TASIGNA [Suspect]
     Indication: NEOPLASM MALIGNANT
     Dosage: 300 MG, BID
     Route: 048
     Dates: start: 20110831
  2. GEMFIBROZIL [Concomitant]
  3. VALTREX [Concomitant]
  4. LIPITOR [Concomitant]
  5. RAPAMUNE [Concomitant]
  6. LASIX [Concomitant]
  7. POTASSIUM CHLORIDE [Concomitant]
  8. CLONIDINE [Concomitant]
  9. COREG [Concomitant]
  10. MYCOPHENOLATE [Concomitant]
  11. LISINOPRIL [Concomitant]
  12. PREDNISONE [Concomitant]
  13. NEXIUM [Concomitant]
  14. MELATONIN [Concomitant]

REACTIONS (1)
  - Malignant neoplasm progression [Unknown]
